FAERS Safety Report 8499538-X (Version None)
Quarter: 2012Q2

REPORT INFORMATION
  Report Type: 
  Country: None (occurrence: None)
  Receive Date: 20120629
  Receipt Date: 20120615
  Transmission Date: 20120825
  Serious: Yes (Other)
  Sender: FDA-Public Use
  Company Number: 2012-2775

PATIENT
  Sex: Male

DRUGS (7)
  1. SYNTHROID [Concomitant]
  2. CORTISONE ACETATE [Concomitant]
  3. APO-PANTOPRAZOLE (PANTOPRAZOLE) [Concomitant]
  4. LANREOTIDE AUTOGEL (LANREOTIDE) (LANREOTIDE ACETATE) [Suspect]
     Indication: PRODUCT USED FOR UNKNOWN INDICATION
     Dosage: 120 MG (120 MG, 1 IN 28 D), SUBCUTANEOUS
     Route: 058
     Dates: start: 20090604
  5. ELAVIL [Concomitant]
  6. SANDOZ CANDERSARTAN (CANDESARTAN) [Concomitant]
  7. RATIO DOMPERIDONE (DOMPERIDONE) [Concomitant]

REACTIONS (1)
  - OSTEONECROSIS [None]
